FAERS Safety Report 7765466-8 (Version None)
Quarter: 2011Q3

REPORT INFORMATION
  Report Type: 
  Country: None (occurrence: None)
  Receive Date: 20110921
  Receipt Date: 20110915
  Transmission Date: 20111222
  Serious: Yes (Other)
  Sender: FDA-Public Use
  Company Number: FR-ROXANE LABORATORIES, INC.-2011-RO-01295RO

PATIENT
  Age: 36 Year
  Sex: Male

DRUGS (6)
  1. AMISULPRIDE [Suspect]
  2. TRIMEPRAZINE TAB [Suspect]
  3. CODEINE SULFATE [Suspect]
  4. METHADONE HCL [Suspect]
     Dosage: 50 MG
  5. FLUOXETINE [Suspect]
  6. MIANSERINE [Suspect]

REACTIONS (1)
  - ELECTROCARDIOGRAM QT PROLONGED [None]
